FAERS Safety Report 8074437-6 (Version None)
Quarter: 2012Q1

REPORT INFORMATION
  Report Type: 
  Country: None (occurrence: None)
  Receive Date: 20120126
  Receipt Date: 20120120
  Transmission Date: 20120608
  Serious: Yes (Hospitalization)
  Sender: FDA-Public Use
  Company Number: DK-GLAXOSMITHKLINE-Z0013192A

PATIENT
  Sex: Female
  Weight: 113.7 kg

DRUGS (10)
  1. CATAPRES [Concomitant]
     Indication: HOT FLUSH
     Dosage: 50MG EVERY 3 DAYS
     Route: 048
  2. PLACEBO [Suspect]
     Indication: CHRONIC OBSTRUCTIVE PULMONARY DISEASE
     Route: 055
  3. ACETAMINOPHEN [Concomitant]
     Indication: MIXED CONNECTIVE TISSUE DISEASE
     Dosage: 1000MG EVERY 3 DAYS
     Route: 048
     Dates: start: 20070101
  4. ELOCON [Concomitant]
     Indication: ROSACEA
     Dosage: .1MG AS REQUIRED
     Route: 061
     Dates: start: 20110601
  5. LAMOTRIGINE [Suspect]
     Indication: PAIN
     Dosage: 50MG EVERY 3 DAYS
     Route: 048
     Dates: start: 20111104, end: 20111202
  6. MORPHINE [Concomitant]
     Indication: PAIN
     Dosage: 15MG AS REQUIRED
     Route: 048
     Dates: start: 20070101
  7. MAGNESIA [Concomitant]
     Indication: CONSTIPATION PROPHYLAXIS
     Dosage: 500MG EVERY 3 DAYS
     Route: 048
     Dates: start: 20080101
  8. BISACODYL [Concomitant]
     Indication: CONSTIPATION
     Dosage: 7.5MGML PER DAY
     Route: 048
     Dates: start: 20110101
  9. METADON [Concomitant]
     Indication: PAIN
     Dosage: 15MG AS REQUIRED
     Route: 048
     Dates: start: 20070101
  10. GW642444 [Suspect]
     Indication: CHRONIC OBSTRUCTIVE PULMONARY DISEASE
     Route: 055
     Dates: start: 20111026, end: 20111130

REACTIONS (1)
  - LEUKOCYTOCLASTIC VASCULITIS [None]
